FAERS Safety Report 15283930 (Version 1)
Quarter: 2018Q3

REPORT INFORMATION
  Report Type: Report from Study
  Country: US (occurrence: US)
  Receive Date: 20180816
  Receipt Date: 20180816
  Transmission Date: 20181010
  Serious: Yes (Other)
  Sender: FDA-Public Use
  Company Number: US-TEVA-2018-US-944567

PATIENT
  Age: 70 Year
  Sex: Male

DRUGS (2)
  1. AUSTEDO [Suspect]
     Active Substance: DEUTETRABENAZINE
     Dosage: HE REDUCE THE DOSE TO 18 MG TWICE DAILY.
     Route: 065
  2. AUSTEDO [Suspect]
     Active Substance: DEUTETRABENAZINE
     Indication: TARDIVE DYSKINESIA
     Dosage: TITRATED UP TO 24 MG TWICE DAILY.
     Route: 065
     Dates: start: 20180701

REACTIONS (9)
  - Disturbance in attention [Unknown]
  - Mental impairment [Unknown]
  - Cardiac disorder [Unknown]
  - Palpitations [Unknown]
  - Balance disorder [Unknown]
  - Disorientation [Unknown]
  - Cerebral disorder [Unknown]
  - Insomnia [Unknown]
  - Restlessness [Unknown]

NARRATIVE: CASE EVENT DATE: 20180808
